FAERS Safety Report 6443949-0 (Version None)
Quarter: 2009Q4

REPORT INFORMATION
  Report Type: 
  Country: None (occurrence: None)
  Receive Date: 20091113
  Receipt Date: 20091103
  Transmission Date: 20100525
  Serious: Yes (Death, Hospitalization)
  Sender: FDA-Public Use
  Company Number: SPV1-2009-02144

PATIENT
  Age: 5 Year
  Sex: Male
  Weight: 20 kg

DRUGS (1)
  1. ELAPRASE [Suspect]
     Indication: MUCOPOLYSACCHARIDOSIS II
     Dosage: 9 MG, 1X/WEEK, IV DRIP
     Route: 041
     Dates: start: 20080416, end: 20091014

REACTIONS (5)
  - CARDIO-RESPIRATORY ARREST [None]
  - OEDEMA [None]
  - PNEUMONIA [None]
  - PNEUMONIA RESPIRATORY SYNCYTIAL VIRAL [None]
  - TRACHEAL STENOSIS [None]
